FAERS Safety Report 24098340 (Version 1)
Quarter: 2024Q3

REPORT INFORMATION
  Report Type: Spontaneous
  Country: CN (occurrence: CN)
  Receive Date: 20240716
  Receipt Date: 20240716
  Transmission Date: 20241016
  Serious: Yes (Hospitalization, Other)
  Sender: MERCK
  Company Number: CN-009507513-2407CHN008920

PATIENT
  Age: 54 Year
  Sex: Male

DRUGS (3)
  1. KEYTRUDA [Suspect]
     Active Substance: PEMBROLIZUMAB
     Indication: Lung neoplasm
     Dosage: 200 MG, Q3W  ON DAY 1
     Route: 041
     Dates: start: 20240618, end: 20240618
  2. CARBOPLATIN [Suspect]
     Active Substance: CARBOPLATIN
     Indication: Lung neoplasm
     Dosage: 580 MG, Q3W  ON DAY 1
     Route: 041
     Dates: start: 20240618, end: 20240618
  3. PACLITAXEL [Suspect]
     Active Substance: PACLITAXEL
     Indication: Lung neoplasm
     Dosage: 200 MG, Q3W ON DAY 1
     Route: 041
     Dates: start: 20240618, end: 20240618

REACTIONS (1)
  - Agranulocytosis [Recovered/Resolved]

NARRATIVE: CASE EVENT DATE: 20240704
